FAERS Safety Report 5988502-8 (Version None)
Quarter: 2008Q4

REPORT INFORMATION
  Report Type: 
  Country: None (occurrence: None)
  Receive Date: 20081208
  Receipt Date: 20081208
  Transmission Date: 20090506
  Serious: Yes (Other)
  Sender: FDA-Public Use
  Company Number: None

PATIENT
  Age: 39 Year
  Sex: Female
  Weight: 73.4827 kg

DRUGS (1)
  1. TOPAMAX [Suspect]

REACTIONS (1)
  - ALOPECIA [None]
